FAERS Safety Report 5761510-8 (Version None)
Quarter: 2008Q2

REPORT INFORMATION
  Report Type: 
  Country: None (occurrence: None)
  Receive Date: 20080606
  Receipt Date: 20080530
  Transmission Date: 20081010
  Serious: Yes (Other)
  Sender: FDA-Public Use
  Company Number: CA-BOEHRINGER INGELHEIM GMBH, GERMANY-2008-BP-08505RO

PATIENT
  Age: 57 Year
  Sex: Female

DRUGS (5)
  1. MIDAZOLAM HCL [Suspect]
     Indication: SEDATION
     Route: 042
  2. LIDOCAINE [Suspect]
     Indication: LOCAL ANAESTHESIA
     Route: 042
  3. FENTANYL TRANSDERMAL SYSTEM [Suspect]
     Indication: SEDATION
     Route: 042
  4. BUPIVACAINE HCL [Suspect]
     Indication: LOCAL ANAESTHESIA
     Route: 042
  5. EPINEPHRINE [Suspect]
     Indication: LOCAL ANAESTHESIA
     Route: 042

REACTIONS (8)
  - AGITATION [None]
  - BLOOD PRESSURE INCREASED [None]
  - COORDINATION ABNORMAL [None]
  - DISCOMFORT [None]
  - DIZZINESS [None]
  - HEART RATE INCREASED [None]
  - INCORRECT ROUTE OF DRUG ADMINISTRATION [None]
  - LOSS OF CONSCIOUSNESS [None]
